FAERS Safety Report 7880204-6 (Version None)
Quarter: 2011Q4

REPORT INFORMATION
  Report Type: 
  Country: None (occurrence: None)
  Receive Date: 20111101
  Receipt Date: 20111027
  Transmission Date: 20120403
  Serious: No
  Sender: FDA-Public Use
  Company Number: US-PFIZER INC-2011230737

PATIENT
  Sex: Male
  Weight: 79.8 kg

DRUGS (7)
  1. FLEXERIL [Concomitant]
     Indication: ARTHRITIS
  2. IBUPROFEN (ADVIL) [Suspect]
     Indication: ARTHRITIS
     Dosage: 200 MG, UNK
     Route: 048
     Dates: start: 20110926
  3. FLEXERIL [Concomitant]
     Indication: SPINAL COLUMN STENOSIS
     Dosage: UNK
  4. IBUPROFEN (ADVIL) [Suspect]
     Indication: PAIN
  5. PERCOCET [Concomitant]
     Indication: MUSCLE SPASMS
     Dosage: UNK
  6. IBUPROFEN (ADVIL) [Suspect]
     Indication: HEADACHE
  7. IBUPROFEN (ADVIL) [Suspect]
     Indication: SPINAL COLUMN STENOSIS
     Dosage: 200 MG, 3 TO 4 TIMES A DAY
     Route: 048
     Dates: start: 20110926

REACTIONS (5)
  - WHITE BLOOD CELL COUNT INCREASED [None]
  - DRUG INEFFECTIVE [None]
  - HEADACHE [None]
  - RED BLOOD CELL COUNT INCREASED [None]
  - ABDOMINAL DISCOMFORT [None]
